FAERS Safety Report 9817027 (Version 1)
Quarter: 2014Q1

REPORT INFORMATION
  Report Type: Spontaneous
  Country: US (occurrence: US)
  Receive Date: 20140114
  Receipt Date: 20140114
  Transmission Date: 20141002
  Serious: No
  Sender: FDA-Public Use
  Company Number: US-BIOGENIDEC-2014BI000184

PATIENT
  Age: 54 Year
  Sex: Female

DRUGS (9)
  1. TECFIDERA [Suspect]
     Indication: MULTIPLE SCLEROSIS
     Route: 048
     Dates: start: 201307
  2. BABY ASPIRIN [Concomitant]
  3. BACLOFEN [Concomitant]
  4. LATANOPROST [Concomitant]
  5. LIPITOR [Concomitant]
  6. NUVIGIL [Concomitant]
  7. OMEPRAZOLE [Concomitant]
  8. PROPANALOL [Concomitant]
  9. VITAMIN D [Concomitant]

REACTIONS (2)
  - Depressed mood [Unknown]
  - Depression [Unknown]
